FAERS Safety Report 8199919-8 (Version None)
Quarter: 2012Q1

REPORT INFORMATION
  Report Type: 
  Country: None (occurrence: None)
  Receive Date: 20120312
  Receipt Date: 20120306
  Transmission Date: 20120608
  Serious: No
  Sender: FDA-Public Use
  Company Number: US-BIOGENIDEC-2012BI008260

PATIENT
  Age: 53 Year
  Sex: Female

DRUGS (2)
  1. TYSABRI [Suspect]
     Indication: MULTIPLE SCLEROSIS
     Route: 042
     Dates: start: 20061010, end: 20080104
  2. TYSABRI [Suspect]
     Route: 042
     Dates: start: 20111114

REACTIONS (3)
  - DYSPNOEA [None]
  - ASTHMA [None]
  - NERVOUSNESS [None]
